FAERS Safety Report 15172180 (Version 1)
Quarter: 2018Q3

REPORT INFORMATION
  Report Type: Spontaneous
  Country: US (occurrence: US)
  Receive Date: 20180720
  Receipt Date: 20180720
  Transmission Date: 20181010
  Serious: No
  Sender: FDA-Public Use
  Company Number: US-US WORLDMEDS, LLC-USW201803-000519

PATIENT

DRUGS (2)
  1. LEVODOPA [Concomitant]
     Active Substance: LEVODOPA
  2. XADAGO [Suspect]
     Active Substance: SAFINAMIDE MESYLATE

REACTIONS (1)
  - Hallucination [Unknown]
